FAERS Safety Report 8886997 (Version 1)
Quarter: 2012Q4

REPORT INFORMATION
  Report Type: 
  Country: US (occurrence: US)
  Receive Date: 20121105
  Receipt Date: 20121105
  Transmission Date: 20130627
  Serious: Yes (Other)
  Sender: FDA-Public Use
  Company Number: PHEH2012US021192

PATIENT
  Age: 66 Year

DRUGS (1)
  1. TASIGNA [Suspect]
     Dosage: 150 mg, BID
     Route: 048
     Dates: start: 20120517

REACTIONS (1)
  - Lung disorder [Not Recovered/Not Resolved]
